FAERS Safety Report 17769112 (Version 1)
Quarter: 2020Q2

REPORT INFORMATION
  Report Type: Spontaneous
  Country: CA (occurrence: CA)
  Receive Date: 20200512
  Receipt Date: 20200512
  Transmission Date: 20200714
  Serious: Yes (Hospitalization)
  Sender: FDA-Public Use
  Company Number: CA-ROCHE-2595571

PATIENT
  Age: 15 Year
  Sex: Female
  Weight: 89 kg

DRUGS (3)
  1. RITUXAN [Suspect]
     Active Substance: RITUXIMAB
     Indication: AUTOIMMUNE PANCREATITIS
     Route: 041
  2. HYDROXYCHLOROQUINE [Concomitant]
     Active Substance: HYDROXYCHLOROQUINE
  3. PREDNISONE. [Concomitant]
     Active Substance: PREDNISONE

REACTIONS (11)
  - Dermatitis exfoliative generalised [Unknown]
  - Trismus [Unknown]
  - Hyperhidrosis [Unknown]
  - Face oedema [Unknown]
  - Rash [Unknown]
  - Odynophagia [Unknown]
  - Pain in extremity [Unknown]
  - Hypersensitivity [Unknown]
  - Pyrexia [Unknown]
  - Nausea [Unknown]
  - Oedema peripheral [Unknown]
